FAERS Safety Report 7550287-1 (Version None)
Quarter: 2011Q2

REPORT INFORMATION
  Report Type: 
  Country: None (occurrence: None)
  Receive Date: 20110615
  Receipt Date: 20110103
  Transmission Date: 20111010
  Serious: Yes (Hospitalization, Other)
  Sender: FDA-Public Use
  Company Number: US-BAYER-201034716NA

PATIENT
  Age: 45 Year
  Sex: Female
  Weight: 92.517 kg

DRUGS (8)
  1. OMEPRAZOLE [Concomitant]
     Indication: GASTROOESOPHAGEAL REFLUX DISEASE
     Dosage: 20 MG, BID
     Route: 048
     Dates: start: 20050921
  2. IMMUNOTHERAPY INJECTIONS [Concomitant]
     Indication: MULTIPLE ALLERGIES
     Dosage: UNK UNK, Q1MON
     Dates: start: 20050804
  3. IBUPROFEN [Concomitant]
     Indication: ARTHRALGIA
     Dosage: 600 MG, BID
     Route: 048
  4. YASMIN [Suspect]
     Indication: CONTRACEPTION
  5. NAPROSYN [Concomitant]
     Indication: ARTHRITIS
     Dosage: UNK
     Dates: start: 19900101
  6. SEPTRA DS [Concomitant]
     Indication: URINARY TRACT INFECTION
     Dosage: UNK
     Dates: start: 19940101
  7. YASMIN [Suspect]
     Indication: SLEEP DISORDER
     Dosage: UNK
     Dates: start: 20060201, end: 20060329
  8. MULTI-VITAMIN [Concomitant]
     Dosage: UNK
     Dates: start: 20060101

REACTIONS (4)
  - PULMONARY EMBOLISM [None]
  - HEPATIC CONGESTION [None]
  - PULMONARY HYPERTENSION [None]
  - PULMONARY THROMBOSIS [None]
